FAERS Safety Report 24569021 (Version 1)
Quarter: 2024Q4

REPORT INFORMATION
  Report Type: Spontaneous
  Country: HR (occurrence: HR)
  Receive Date: 20241031
  Receipt Date: 20241031
  Transmission Date: 20250115
  Serious: Yes (Death, Hospitalization)
  Sender: ROCHE
  Company Number: HR-ROCHE-10000117895

PATIENT
  Age: 58 Year
  Sex: Female

DRUGS (8)
  1. RITUXIMAB [Suspect]
     Active Substance: RITUXIMAB
     Indication: Anti-neutrophil cytoplasmic antibody positive vasculitis
     Route: 042
  2. METHYLPREDNISOLONE [Suspect]
     Active Substance: METHYLPREDNISOLONE
     Indication: Anti-neutrophil cytoplasmic antibody positive vasculitis
     Dosage: FOR 7 DAYS
     Route: 042
  3. METHYLPREDNISOLONE [Suspect]
     Active Substance: METHYLPREDNISOLONE
     Dosage: AFTERWARDS 0.5-1 MG/KG
     Route: 042
  4. METHYLPREDNISOLONE [Suspect]
     Active Substance: METHYLPREDNISOLONE
     Dosage: FOR 3 DAYS
     Route: 042
  5. CYCLOPHOSPHAMIDE [Suspect]
     Active Substance: CYCLOPHOSPHAMIDE
     Indication: Anti-neutrophil cytoplasmic antibody positive vasculitis
     Route: 042
  6. HUMAN IMMUNOGLOBULIN G [Suspect]
     Active Substance: HUMAN IMMUNOGLOBULIN G
     Indication: Anti-neutrophil cytoplasmic antibody positive vasculitis
     Route: 042
  7. MEROPENEM [Concomitant]
     Active Substance: MEROPENEM
  8. VANCOMYCIN [Concomitant]
     Active Substance: VANCOMYCIN

REACTIONS (4)
  - Bacterial sepsis [Fatal]
  - Pseudomonal sepsis [Fatal]
  - Multiple organ dysfunction syndrome [Fatal]
  - Candida infection [Unknown]
